FAERS Safety Report 7713713-0 (Version None)
Quarter: 2011Q3

REPORT INFORMATION
  Report Type: 
  Country: None (occurrence: None)
  Receive Date: 20110826
  Receipt Date: 20110822
  Transmission Date: 20111222
  Serious: Yes (Other)
  Sender: FDA-Public Use
  Company Number: US-PFIZER INC-2010112004

PATIENT
  Sex: Female
  Weight: 70.7 kg

DRUGS (8)
  1. NEURONTIN [Concomitant]
     Dosage: UNK
  2. ELAVIL [Concomitant]
     Dosage: UNK
  3. NORCO [Concomitant]
     Dosage: UNK
  4. SOMA [Concomitant]
     Dosage: UNK
  5. LOVASTATIN [Concomitant]
     Dosage: UNK
  6. DEXTROAMPHETAMINE [Concomitant]
     Indication: ATTENTION DEFICIT/HYPERACTIVITY DISORDER
     Dosage: UNK
  7. LYRICA [Suspect]
     Indication: FIBROMYALGIA
     Dosage: 75 MG, 1X/DAY
     Route: 048
  8. LYRICA [Suspect]
     Indication: PAIN
     Dosage: UNK

REACTIONS (8)
  - WEIGHT INCREASED [None]
  - VISION BLURRED [None]
  - DEPRESSION [None]
  - NECK PAIN [None]
  - DRUG INEFFECTIVE [None]
  - STRESS [None]
  - PAIN IN EXTREMITY [None]
  - ARTHRALGIA [None]
